FAERS Safety Report 8020588-1 (Version None)
Quarter: 2012Q1

REPORT INFORMATION
  Report Type: 
  Country: None (occurrence: None)
  Receive Date: 20120103
  Receipt Date: 20111219
  Transmission Date: 20120608
  Serious: Yes (Hospitalization)
  Sender: FDA-Public Use
  Company Number: US-WATSON-2011-22700

PATIENT
  Age: 84 Year
  Sex: Male

DRUGS (1)
  1. BUPROPION HCL [Suspect]
     Indication: DEPRESSION

REACTIONS (11)
  - MENTAL STATUS CHANGES [None]
  - TREMOR [None]
  - NEUROLOGICAL EXAMINATION ABNORMAL [None]
  - DYSARTHRIA [None]
  - ASTHENIA [None]
  - HALLUCINATION, VISUAL [None]
  - VERTIGO [None]
  - DELIRIUM [None]
  - MYOCLONUS [None]
  - ATAXIA [None]
  - AGITATION [None]
